FAERS Safety Report 4389997-6 (Version None)
Quarter: 2004Q2

REPORT INFORMATION
  Report Type: 
  Country: None (occurrence: None)
  Receive Date: 20040630
  Receipt Date: 20040616
  Transmission Date: 20050107
  Serious: Yes (Hospitalization)
  Sender: FDA-Public Use
  Company Number: 2004041002

PATIENT
  Sex: 0

DRUGS (1)
  1. NEURONTIN [Suspect]
     Indication: HERPES ZOSTER

REACTIONS (2)
  - DIFFICULTY IN WALKING [None]
  - FALL [None]
